FAERS Safety Report 14903607 (Version 1)
Quarter: 2018Q2

REPORT INFORMATION
  Report Type: Spontaneous
  Country: US (occurrence: US)
  Receive Date: 20180516
  Receipt Date: 20180516
  Transmission Date: 20180711
  Serious: No
  Sender: FDA-Public Use
  Company Number: US-ACTELION-A-NJ2018-172261

PATIENT
  Age: 7 Year
  Sex: Male

DRUGS (11)
  1. VENTAVIS [Suspect]
     Active Substance: ILOPROST
     Indication: PULMONARY HYPERTENSION
     Dosage: 5 MCG, 8 TIMES A DAY
     Route: 055
     Dates: start: 20180413
  2. TRACLEER [Suspect]
     Active Substance: BOSENTAN
     Dosage: 31.2 MG, BID
     Route: 048
     Dates: start: 20180427
  3. VITAMIN D2 [Concomitant]
     Active Substance: ERGOCALCIFEROL
     Dosage: 2400 U, QD
     Route: 048
  4. ATROVENT [Concomitant]
     Active Substance: IPRATROPIUM BROMIDE
     Dosage: 1 VIAL MIXED WITH ALBUTEROL EVERY 6 HOURS
  5. QVAR [Concomitant]
     Active Substance: BECLOMETHASONE DIPROPIONATE
     Route: 055
  6. OXYGEN. [Concomitant]
     Active Substance: OXYGEN
     Dosage: 2 L, UNK
  7. PEDIASURE [Concomitant]
     Active Substance: VITAMINS
     Dosage: 1 CAN 4 TIMES DAILY
     Route: 048
  8. PROVENTIL [Concomitant]
     Active Substance: ALBUTEROL
     Dosage: 2.5MG/3ML EVERY 4-6 HOURS PRN
  9. KENALOG [Concomitant]
     Active Substance: TRIAMCINOLONE ACETONIDE
  10. REVATIO [Concomitant]
     Active Substance: SILDENAFIL CITRATE
     Dosage: 20 MG, TID
     Route: 048
  11. TRACLEER [Suspect]
     Active Substance: BOSENTAN
     Indication: PULMONARY HYPERTENSION
     Dosage: 15.6 MG, BID
     Route: 048
     Dates: start: 20180412

REACTIONS (2)
  - Right ventricular dysfunction [Recovering/Resolving]
  - Tricuspid valve incompetence [Recovering/Resolving]
